FAERS Safety Report 12799761 (Version 1)
Quarter: 2016Q3

REPORT INFORMATION
  Report Type: Report from Study
  Country: GB (occurrence: GB)
  Receive Date: 20160930
  Receipt Date: 20160930
  Transmission Date: 20161109
  Serious: Yes (Hospitalization)
  Sender: FDA-Public Use
  Company Number: GB-PFIZER INC-2016446000

PATIENT
  Age: 57 Year
  Sex: Female
  Weight: 66 kg

DRUGS (7)
  1. AXITINIB [Suspect]
     Active Substance: AXITINIB
     Dosage: 7 MG, 2X/DAY
     Dates: start: 20160823, end: 20160905
  2. LEVOTHYROXINE. [Concomitant]
     Active Substance: LEVOTHYROXINE
     Indication: HYPOTHYROIDISM
     Dosage: UNK
     Route: 048
  3. AMLODIPINE [Concomitant]
     Active Substance: AMLODIPINE BESYLATE
     Indication: HYPERTENSION
     Dosage: UNK
     Route: 048
  4. AXITINIB [Suspect]
     Active Substance: AXITINIB
     Indication: RECTOSIGMOID CANCER
     Dosage: 5 MG, 2X/DAY
     Dates: start: 20160809, end: 20160822
  5. TINZAPARIN [Concomitant]
     Active Substance: TINZAPARIN
     Indication: THROMBOSIS
     Dosage: UNK
     Route: 058
  6. AXITINIB [Suspect]
     Active Substance: AXITINIB
     Dosage: 10 MG, 2X/DAY
     Dates: start: 20160906, end: 20160919
  7. BISOPROLOL [Concomitant]
     Active Substance: BISOPROLOL
     Indication: HYPERTENSION
     Dosage: UNK
     Route: 048

REACTIONS (1)
  - Gastrointestinal stoma complication [Recovering/Resolving]

NARRATIVE: CASE EVENT DATE: 20160915
